FAERS Safety Report 16952696 (Version 1)
Quarter: 2019Q4

REPORT INFORMATION
  Report Type: Spontaneous
  Country: GB (occurrence: GB)
  Receive Date: 20191023
  Receipt Date: 20191023
  Transmission Date: 20200122
  Serious: Yes (Other)
  Sender: FDA-Public Use
  Company Number: GB-MYLANLABS-2019M1099741

PATIENT
  Sex: Female
  Weight: 2.23 kg

DRUGS (4)
  1. FORMOTEROL [Suspect]
     Active Substance: FORMOTEROL
     Indication: ASTHMA
     Dosage: 2 DOSAGE FORM, QD (1 DF, 2X PER DAY BID)
     Route: 064
     Dates: start: 200510
  2. FLUOXETINE [Suspect]
     Active Substance: FLUOXETINE HYDROCHLORIDE
     Indication: DEPRESSION
     Dosage: 10 MILLIGRAM
     Route: 064
  3. SALBUTAMOL [Suspect]
     Active Substance: ALBUTEROL
     Indication: ASTHMA
     Dosage: UNK
     Route: 064
  4. BUDESONIDE. [Suspect]
     Active Substance: BUDESONIDE
     Indication: ASTHMA
     Dosage: 2 DOSAGE FORM, QD (1 DF, 2 X PER DAY BID)
     Route: 064
     Dates: start: 200510

REACTIONS (3)
  - Low birth weight baby [Unknown]
  - Sepsis [Unknown]
  - Foetal exposure during pregnancy [Recovered/Resolved]
